FAERS Safety Report 5601988-3 (Version None)
Quarter: 2008Q1

REPORT INFORMATION
  Report Type: 
  Country: None (occurrence: None)
  Receive Date: 20080125
  Receipt Date: 20080122
  Transmission Date: 20080703
  Serious: Yes (Life-Threatening, Hospitalization)
  Sender: FDA-Public Use
  Company Number: US-BAYER-US-2007-033512

PATIENT
  Age: 73 Year
  Sex: Male
  Weight: 79 kg

DRUGS (1)
  1. MAGNEVIST [Suspect]
     Indication: NUCLEAR MAGNETIC RESONANCE IMAGING
     Dosage: UNIT DOSE: 18 ML
     Route: 042
     Dates: start: 20070831, end: 20070831

REACTIONS (8)
  - COUGH [None]
  - DYSARTHRIA [None]
  - GENERALISED ERYTHEMA [None]
  - HYPOTENSION [None]
  - LOSS OF CONSCIOUSNESS [None]
  - NAUSEA [None]
  - OXYGEN SATURATION DECREASED [None]
  - VOMITING [None]
